FAERS Safety Report 6862178-X (Version None)
Quarter: 2010Q3

REPORT INFORMATION
  Report Type: 
  Country: None (occurrence: None)
  Receive Date: 20100719
  Receipt Date: 20100708
  Transmission Date: 20110219
  Serious: Yes (Hospitalization)
  Sender: FDA-Public Use
  Company Number: 2010US002305

PATIENT
  Age: 70 Year
  Sex: Female
  Weight: 77 kg

DRUGS (5)
  1. AMEVIVE [Suspect]
     Indication: PSORIASIS
     Dosage: 15 MG, WEEKLY, INTRAMUSCULAR
     Route: 030
     Dates: start: 20050615, end: 20071024
  2. TIAZAC (PIOGLITAZONE HYDROCHLORIDE) [Concomitant]
  3. SPIRIVA [Concomitant]
  4. COZAAR (LOSARTAN POTSSIUM) [Concomitant]
  5. SYNTHROID [Concomitant]

REACTIONS (2)
  - HAEMORRHAGIC ANAEMIA [None]
  - KNEE ARTHROPLASTY [None]
